FAERS Safety Report 9553169 (Version 2)
Quarter: 2013Q4

REPORT INFORMATION
  Report Type: Spontaneous
  Country: FR (occurrence: FR)
  Receive Date: 20130925
  Receipt Date: 20131022
  Transmission Date: 20140711
  Serious: Yes (Other)
  Sender: FDA-Public Use
  Company Number: FR-UCBSA-097887

PATIENT
  Age: 23 Year
  Sex: Male
  Weight: 60 kg

DRUGS (4)
  1. VIMPAT [Suspect]
     Indication: EPILEPSY
     Route: 048
     Dates: start: 20110913, end: 20130912
  2. LAMICTAL [Suspect]
     Indication: EPILEPSY
     Dosage: BEFORE 2010
     Route: 048
  3. LAMOTRIGINE [Suspect]
     Dosage: DAILY DOSE: 400 MG
     Route: 048
     Dates: start: 2010, end: 20130903
  4. URBANYL [Suspect]
     Indication: EPILEPSY
     Route: 048

REACTIONS (3)
  - Periorbital oedema [Recovered/Resolved]
  - Respiratory disorder [Unknown]
  - Laryngeal oedema [Recovered/Resolved]
